FAERS Safety Report 6062864-8 (Version None)
Quarter: 2009Q1

REPORT INFORMATION
  Report Type: 
  Country: None (occurrence: None)
  Receive Date: 20090202
  Receipt Date: 20090202
  Transmission Date: 20090719
  Serious: No
  Sender: FDA-Public Use
  Company Number: None

PATIENT
  Age: 39 Year
  Sex: Female
  Weight: 61.2356 kg

DRUGS (1)
  1. MELOXICAM [Suspect]
     Indication: MONARTHRITIS
     Dosage: 1 TABLET PER DAY FOR 16 DAYS PO
     Route: 048
     Dates: start: 20090112, end: 20090126

REACTIONS (1)
  - TINNITUS [None]
